FAERS Safety Report 9673442 (Version 1)
Quarter: 2013Q4

REPORT INFORMATION
  Report Type: Spontaneous
  Country: US (occurrence: US)
  Receive Date: 20131106
  Receipt Date: 20131106
  Transmission Date: 20140711
  Serious: No
  Sender: FDA-Public Use
  Company Number: US-AMGEN-USASP2013074515

PATIENT
  Age: 49 Year
  Sex: Female

DRUGS (4)
  1. ENBREL [Suspect]
     Indication: ANKYLOSING SPONDYLITIS
     Dosage: UNK UNK, 2 TIMES/WK
     Route: 065
  2. ZOMIG [Concomitant]
     Indication: HEADACHE
     Dosage: UNK
  3. FROVA [Concomitant]
     Indication: HEADACHE
     Dosage: UNK
  4. PROMETHAZINE [Concomitant]
     Indication: HEADACHE
     Dosage: UNK

REACTIONS (5)
  - Headache [Unknown]
  - Injection site reaction [Unknown]
  - Injection site erythema [Unknown]
  - Injection site induration [Unknown]
  - Injection site pruritus [Unknown]
